FAERS Safety Report 5890053-6 (Version None)
Quarter: 2008Q3

REPORT INFORMATION
  Report Type: 
  Country: None (occurrence: None)
  Receive Date: 20080919
  Receipt Date: 20080911
  Transmission Date: 20090109
  Serious: Yes (Hospitalization, Other)
  Sender: FDA-Public Use
  Company Number: JP-PFIZER INC-2008057211

PATIENT
  Sex: Female

DRUGS (2)
  1. AZULFIDINE EN-TABS [Suspect]
     Indication: RHEUMATOID ARTHRITIS
     Dosage: DAILY DOSE:1000MG-FREQ:FREQUENCY: BID
     Route: 048
     Dates: start: 20080605, end: 20080702
  2. PREDONINE [Concomitant]
     Route: 048
     Dates: start: 20080618

REACTIONS (2)
  - GENERALISED ERYTHEMA [None]
  - PYREXIA [None]
